FAERS Safety Report 5476883-3 (Version None)
Quarter: 2007Q4

REPORT INFORMATION
  Report Type: 
  Country: None (occurrence: None)
  Receive Date: 20071002
  Receipt Date: 20071002
  Transmission Date: 20080405
  Serious: No
  Sender: FDA-Public Use
  Company Number: None

PATIENT
  Sex: Male
  Weight: 86.1834 kg

DRUGS (2)
  1. DOXAZOSIN 4 MG [Suspect]
     Indication: MICTURITION DISORDER
     Dosage: 4 MG 1 EACH DAY MOUTH
     Route: 048
     Dates: start: 20070824, end: 20070903
  2. DOXAZOSIN 4 MG [Suspect]
     Indication: PROSTATIC DISORDER
     Dosage: 4 MG 1 EACH DAY MOUTH
     Route: 048
     Dates: start: 20070824, end: 20070903

REACTIONS (3)
  - ANAL DISCOMFORT [None]
  - DIARRHOEA [None]
  - PHARMACEUTICAL PRODUCT COMPLAINT [None]
